FAERS Safety Report 5049522-3 (Version None)
Quarter: 2006Q2

REPORT INFORMATION
  Report Type: 
  Country: None (occurrence: None)
  Receive Date: 20060613
  Receipt Date: 20060424
  Transmission Date: 20061013
  Serious: Yes (Other)
  Sender: FDA-Public Use
  Company Number: 2006-00959

PATIENT
  Age: 69 Year
  Sex: Male
  Weight: 94.3 kg

DRUGS (17)
  1. VELCADE [Suspect]
     Indication: MULTIPLE MYELOMA
     Dosage: 1.30 MG/M2, IV BOLUS
     Route: 040
     Dates: start: 20060403, end: 20060411
  2. DECADRON [Concomitant]
  3. OXYCODONE (OXYCODONE) [Concomitant]
  4. ZANTAC [Concomitant]
  5. DIGOXIN [Concomitant]
  6. LISINOPRIL [Concomitant]
  7. GLIPIZIDE [Concomitant]
  8. SULUNDAC (SULINDAC) [Concomitant]
  9. ACETIC ACID DERIVATIVES AND RELATED SUBST. [Concomitant]
  10. LOPRESSOR [Concomitant]
  11. TRAMADOL HCL [Concomitant]
  12. COMPAZINE [Concomitant]
  13. SENOKOT [Concomitant]
  14. CLARITIN [Concomitant]
  15. CALCIUM WITH VITAMIN D (ERGOCALCIFEROL, CALCIUM SODIUM LACTATE, CALCIU [Concomitant]
  16. VALACYCLOVIR [Concomitant]
  17. MOXIFLOXACIN HCL [Concomitant]

REACTIONS (1)
  - RASH [None]
